FAERS Safety Report 13374452 (Version 2)
Quarter: 2017Q2

REPORT INFORMATION
  Report Type: Spontaneous
  Country: US (occurrence: US)
  Receive Date: 20170327
  Receipt Date: 20170421
  Transmission Date: 20170830
  Serious: Yes (Death, Hospitalization)
  Sender: FDA-Public Use
  Company Number: US-PFIZER INC-2017126820

PATIENT
  Age: 70 Year
  Sex: Male
  Weight: 84 kg

DRUGS (2)
  1. LYRICA [Suspect]
     Active Substance: PREGABALIN
     Indication: PAIN IN EXTREMITY
  2. LYRICA [Suspect]
     Active Substance: PREGABALIN
     Indication: DYSKINESIA
     Dosage: 300 MG, 3X/DAY
     Dates: start: 2010

REACTIONS (4)
  - Product use in unapproved indication [Fatal]
  - Chronic obstructive pulmonary disease [Fatal]
  - Pulmonary oedema [Fatal]
  - Overdose [Fatal]

NARRATIVE: CASE EVENT DATE: 2010
